FAERS Safety Report 7277621-4 (Version None)
Quarter: 2011Q1

REPORT INFORMATION
  Report Type: 
  Country: None (occurrence: None)
  Receive Date: 20110207
  Receipt Date: 20110127
  Transmission Date: 20110831
  Serious: Yes (Other)
  Sender: FDA-Public Use
  Company Number: GB-JNJFOC-20110107534

PATIENT
  Age: 79 Year
  Sex: Female
  Weight: 79 kg

DRUGS (2)
  1. INFLIXIMAB, RECOMBINANT [Suspect]
     Indication: EPISCLERITIS
     Dosage: NO INFO SINCE 26-JUN-2006, PATIENT STILL ON BIO AT THAT TIME.
     Route: 042
  2. METHOTREXATE [Concomitant]
     Dosage: NO INFO SINCE 26-JUN-2006, PATIENT STILL ON MTX AT THAT TIME.

REACTIONS (1)
  - SKIN CANCER [None]
